FAERS Safety Report 5452348-X (Version None)
Quarter: 2007Q3

REPORT INFORMATION
  Report Type: 
  Country: None (occurrence: None)
  Receive Date: 20070912
  Receipt Date: 20070912
  Transmission Date: 20080115
  Serious: Yes (Other)
  Sender: FDA-Public Use
  Company Number: None

PATIENT
  Age: 44 Year
  Sex: Female
  Weight: 72.5755 kg

DRUGS (1)
  1. DESYREL [Suspect]
     Indication: SLEEP DISORDER
     Dosage: TAKE ONE TO TWO TABLETS EVERY NIGHT @ BEDT PO
     Route: 048
     Dates: start: 20070904, end: 20070907

REACTIONS (18)
  - ABASIA [None]
  - ACTIVITIES OF DAILY LIVING IMPAIRED [None]
  - ANOREXIA [None]
  - BALANCE DISORDER [None]
  - CLITORAL ENGORGEMENT [None]
  - CONFUSIONAL STATE [None]
  - DIZZINESS [None]
  - DRY EYE [None]
  - DRY MOUTH [None]
  - DYSARTHRIA [None]
  - FATIGUE [None]
  - IMPAIRED DRIVING ABILITY [None]
  - INSOMNIA [None]
  - LETHARGY [None]
  - MICTURITION URGENCY [None]
  - POLLAKIURIA [None]
  - VISION BLURRED [None]
  - WEIGHT INCREASED [None]
